FAERS Safety Report 23139007 (Version 1)
Quarter: 2023Q4

REPORT INFORMATION
  Report Type: Spontaneous
  Country: CN (occurrence: CN)
  Receive Date: 20231102
  Receipt Date: 20231102
  Transmission Date: 20240109
  Serious: Yes (Hospitalization, Other)
  Sender: FDA-Public Use
  Company Number: CN-PFIZER INC-PV202300178048

PATIENT
  Age: 54 Year
  Sex: Female

DRUGS (6)
  1. IRINOTECAN [Suspect]
     Active Substance: IRINOTECAN
     Dosage: UNK UNK, CYCLIC
  2. IRINOTECAN [Suspect]
     Active Substance: IRINOTECAN
     Dosage: ONCE DAILY
     Route: 041
     Dates: start: 20230910, end: 20230910
  3. IRINOTECAN [Suspect]
     Active Substance: IRINOTECAN
     Dosage: UNK
     Dates: start: 20230919
  4. SURUFATINIB [Concomitant]
     Active Substance: SURUFATINIB
     Dosage: UNK, CYCLIC
  5. SURUFATINIB [Concomitant]
     Active Substance: SURUFATINIB
     Dosage: UNK, CYCLIC
     Dates: start: 20230910
  6. MECAPEGFILGRASTIM [Concomitant]
     Active Substance: MECAPEGFILGRASTIM
     Indication: Prophylaxis
     Dosage: UNK
     Dates: start: 202309

REACTIONS (2)
  - Myelosuppression [Recovered/Resolved]
  - Febrile neutropenia [Not Recovered/Not Resolved]

NARRATIVE: CASE EVENT DATE: 20230901
